FAERS Safety Report 8480974 (Version 5)
Quarter: 2012Q4

REPORT INFORMATION
  Report Type: 
  Country: US (occurrence: US)
  Receive Date: 20120328
  Receipt Date: 20121105
  Transmission Date: 20130627
  Serious: Yes (Death)
  Sender: FDA-Public Use
  Company Number: US-PFIZER INC-2012076377

PATIENT
  Age: 77 Year
  Sex: Male
  Weight: 85.8 kg

DRUGS (9)
  1. CRIZOTINIB [Suspect]
     Indication: NON-SMALL CELL LUNG CANCER
     Dosage: 250 mg, 2x/day
     Route: 048
     Dates: start: 20110908, end: 20120301
  2. GLIMEPIRIDE [Concomitant]
     Indication: DIABETES MELLITUS INSULIN-DEPENDENT
     Dosage: UNK
     Route: 048
     Dates: start: 20110713
  3. LANTUS SOLOSTAR [Concomitant]
     Indication: DIABETES MELLITUS INSULIN-DEPENDENT
     Dosage: UNK
     Dates: start: 20110713
  4. NOVOLOG GLEXPEN [Concomitant]
     Indication: DIABETES MELLITUS INSULIN-DEPENDENT
     Dosage: UNK
     Dates: start: 20110713
  5. COLCHICINE [Concomitant]
     Indication: GOUT
     Dosage: UNK
     Dates: start: 20110827, end: 20120119
  6. DEXAMETHASONE [Concomitant]
     Indication: PNEUMONIA
     Dosage: UNK
     Dates: start: 20110831
  7. PROCHLORPERAZINE [Concomitant]
     Indication: NAUSEA PROPHYLAXIS
     Dosage: UNK
     Dates: start: 20110831, end: 20120119
  8. FOLIC ACID [Concomitant]
     Dosage: UNK
     Dates: start: 20120119
  9. OXYGEN-HELIUM IN [Concomitant]
     Dosage: UNK
     Dates: start: 20111222

REACTIONS (1)
  - Death [Fatal]
